FAERS Safety Report 7161277-5 (Version None)
Quarter: 2010Q4

REPORT INFORMATION
  Report Type: 
  Country: None (occurrence: None)
  Receive Date: 20101215
  Receipt Date: 20101203
  Transmission Date: 20110411
  Serious: Yes (Life-Threatening, Other)
  Sender: FDA-Public Use
  Company Number: FR-PFIZER INC-2010162183

PATIENT
  Age: 77 Year
  Sex: Male

DRUGS (6)
  1. SOLU-MEDROL [Suspect]
     Indication: CHEMOTHERAPY
     Dosage: 40MG/2ML
     Route: 042
     Dates: start: 20101116
  2. KYTRIL [Suspect]
     Indication: CHEMOTHERAPY
     Dosage: UNK
     Route: 042
     Dates: start: 20101116
  3. AZANTAC [Suspect]
     Indication: CHEMOTHERAPY
     Dosage: UNK
     Route: 042
     Dates: start: 20101116
  4. PREVISCAN [Concomitant]
     Dosage: 1 DF
  5. SOTALOL [Concomitant]
     Dosage: 0.5 DF, 2X/DAY
  6. CAPTOPRIL [Concomitant]
     Dosage: 1 DF

REACTIONS (2)
  - CARDIO-RESPIRATORY ARREST [None]
  - CONVULSION [None]
